FAERS Safety Report 24700685 (Version 6)
Quarter: 2025Q1

REPORT INFORMATION
  Report Type: Spontaneous
  Country: DE (occurrence: DE)
  Receive Date: 20241205
  Receipt Date: 20250113
  Transmission Date: 20250408
  Serious: Yes (Death, Other)
  Sender: ALEXION PHARMACEUTICALS
  Company Number: DE-009507513-2412DEU000432

PATIENT
  Age: 59 Year

DRUGS (40)
  1. LYNPARZA [Suspect]
     Active Substance: OLAPARIB
     Indication: Breast cancer
  2. LYNPARZA [Suspect]
     Active Substance: OLAPARIB
     Indication: Breast cancer
  3. LYNPARZA [Suspect]
     Active Substance: OLAPARIB
     Route: 048
  4. LYNPARZA [Suspect]
     Active Substance: OLAPARIB
     Route: 048
  5. LYNPARZA [Suspect]
     Active Substance: OLAPARIB
  6. LYNPARZA [Suspect]
     Active Substance: OLAPARIB
     Route: 048
  7. LYNPARZA [Suspect]
     Active Substance: OLAPARIB
     Route: 048
  8. LYNPARZA [Suspect]
     Active Substance: OLAPARIB
  9. LYNPARZA [Suspect]
     Active Substance: OLAPARIB
     Route: 048
  10. LYNPARZA [Suspect]
     Active Substance: OLAPARIB
  11. LYNPARZA [Suspect]
     Active Substance: OLAPARIB
  12. LYNPARZA [Suspect]
     Active Substance: OLAPARIB
     Route: 048
  13. LYNPARZA [Suspect]
     Active Substance: OLAPARIB
  14. LYNPARZA [Suspect]
     Active Substance: OLAPARIB
     Route: 048
  15. LYNPARZA [Suspect]
     Active Substance: OLAPARIB
  16. LYNPARZA [Suspect]
     Active Substance: OLAPARIB
     Route: 048
  17. LYNPARZA [Suspect]
     Active Substance: OLAPARIB
  18. LYNPARZA [Suspect]
     Active Substance: OLAPARIB
     Route: 048
  19. LYNPARZA [Suspect]
     Active Substance: OLAPARIB
  20. LYNPARZA [Suspect]
     Active Substance: OLAPARIB
     Route: 048
  21. CASPOFUNGIN ACETATE [Suspect]
     Active Substance: CASPOFUNGIN ACETATE
     Indication: Pneumonia fungal
     Route: 065
  22. CASPOFUNGIN ACETATE [Suspect]
     Active Substance: CASPOFUNGIN ACETATE
     Indication: Pneumonia fungal
     Route: 065
  23. CASPOFUNGIN ACETATE [Suspect]
     Active Substance: CASPOFUNGIN ACETATE
     Route: 065
  24. CASPOFUNGIN ACETATE [Suspect]
     Active Substance: CASPOFUNGIN ACETATE
     Route: 065
  25. CASPOFUNGIN ACETATE [Suspect]
     Active Substance: CASPOFUNGIN ACETATE
     Route: 065
  26. CASPOFUNGIN ACETATE [Suspect]
     Active Substance: CASPOFUNGIN ACETATE
     Route: 065
  27. CASPOFUNGIN ACETATE [Suspect]
     Active Substance: CASPOFUNGIN ACETATE
     Route: 065
  28. CASPOFUNGIN ACETATE [Suspect]
     Active Substance: CASPOFUNGIN ACETATE
     Route: 065
  29. CASPOFUNGIN ACETATE [Suspect]
     Active Substance: CASPOFUNGIN ACETATE
  30. CASPOFUNGIN ACETATE [Suspect]
     Active Substance: CASPOFUNGIN ACETATE
  31. CASPOFUNGIN ACETATE [Suspect]
     Active Substance: CASPOFUNGIN ACETATE
  32. CASPOFUNGIN ACETATE [Suspect]
     Active Substance: CASPOFUNGIN ACETATE
  33. CASPOFUNGIN ACETATE [Suspect]
     Active Substance: CASPOFUNGIN ACETATE
  34. CASPOFUNGIN ACETATE [Suspect]
     Active Substance: CASPOFUNGIN ACETATE
  35. CASPOFUNGIN ACETATE [Suspect]
     Active Substance: CASPOFUNGIN ACETATE
  36. CASPOFUNGIN ACETATE [Suspect]
     Active Substance: CASPOFUNGIN ACETATE
  37. CASPOFUNGIN ACETATE [Suspect]
     Active Substance: CASPOFUNGIN ACETATE
  38. CASPOFUNGIN ACETATE [Suspect]
     Active Substance: CASPOFUNGIN ACETATE
  39. CASPOFUNGIN ACETATE [Suspect]
     Active Substance: CASPOFUNGIN ACETATE
  40. CASPOFUNGIN ACETATE [Suspect]
     Active Substance: CASPOFUNGIN ACETATE

REACTIONS (4)
  - Malignant neoplasm progression [Fatal]
  - Pneumonia fungal [Fatal]
  - Myelodysplastic syndrome [Fatal]
  - Fatigue [Unknown]
